FAERS Safety Report 19607123 (Version 1)
Quarter: 2021Q3

REPORT INFORMATION
  Report Type: Spontaneous
  Country: ZA (occurrence: ZA)
  Receive Date: 20210726
  Receipt Date: 20210726
  Transmission Date: 20211014
  Serious: Yes (Death)
  Sender: FDA-Public Use
  Company Number: ZA-ASTELLAS-2021US027639

PATIENT
  Age: 56 Year
  Sex: Male

DRUGS (1)
  1. ADVAGRAF [Suspect]
     Active Substance: TACROLIMUS
     Indication: TRANSPLANT
     Route: 065

REACTIONS (1)
  - COVID-19 [Fatal]
